FAERS Safety Report 18373387 (Version 1)
Quarter: 2020Q4

REPORT INFORMATION
  Report Type: Spontaneous
  Country: US (occurrence: US)
  Receive Date: 20201012
  Receipt Date: 20201012
  Transmission Date: 20210114
  Serious: No
  Sender: FDA-Public Use
  Company Number: US-BAYER-2020-215649

PATIENT
  Age: 41 Year
  Sex: Female

DRUGS (3)
  1. MIRENA [Suspect]
     Active Substance: LEVONORGESTREL
     Indication: VERTIGO
     Dosage: 20 ?G PER DAY CONTINUOUSLY
     Route: 015
     Dates: start: 20191018, end: 20201002
  2. SYNTHROID [Concomitant]
     Active Substance: LEVOTHYROXINE SODIUM
     Indication: HYPOTHYROIDISM
     Dosage: UNK
  3. TOPAMAX [Concomitant]
     Active Substance: TOPIRAMATE
     Indication: MIGRAINE
     Dosage: UNK
     Dates: start: 20200905

REACTIONS (9)
  - Dizziness [None]
  - Arthralgia [None]
  - Swelling [None]
  - Balance disorder [None]
  - Feeling abnormal [None]
  - Tinnitus [None]
  - Vertigo [Recovering/Resolving]
  - Drug ineffective for unapproved indication [None]
  - Fatigue [None]

NARRATIVE: CASE EVENT DATE: 20191115
